FAERS Safety Report 5671444-5 (Version None)
Quarter: 2008Q1

REPORT INFORMATION
  Report Type: 
  Country: None (occurrence: None)
  Receive Date: 20080318
  Receipt Date: 20080308
  Transmission Date: 20080703
  Serious: Yes (Death, Life-Threatening)
  Sender: FDA-Public Use
  Company Number: US-PFIZER INC-2008022455

PATIENT
  Age: 35 Year
  Sex: Female
  Weight: 95.3 kg

DRUGS (3)
  1. LYRICA [Suspect]
  2. METHADON HCL TAB [Concomitant]
     Dosage: DAILY DOSE:60MG-FREQ:PER DAY
  3. OXYCODONE HCL [Concomitant]
     Dosage: DAILY DOSE:40MG-FREQ:PER DAY

REACTIONS (1)
  - DEATH [None]
